FAERS Safety Report 7953830-3 (Version None)
Quarter: 2011Q4

REPORT INFORMATION
  Report Type: 
  Country: None (occurrence: None)
  Receive Date: 20111202
  Receipt Date: 20111122
  Transmission Date: 20120403
  Serious: Yes (Other)
  Sender: FDA-Public Use
  Company Number: US-US-EMD SERONO, INC.-7097219

PATIENT
  Sex: Female
  Weight: 64 kg

DRUGS (2)
  1. REBIF [Suspect]
     Indication: MULTIPLE SCLEROSIS
     Route: 058
     Dates: start: 20110727
  2. RITALIN [Concomitant]
     Indication: FATIGUE
     Route: 048

REACTIONS (3)
  - BIPOLAR DISORDER [None]
  - ANXIETY [None]
  - PANIC ATTACK [None]
